FAERS Safety Report 15371725 (Version 2)
Quarter: 2018Q3

REPORT INFORMATION
  Report Type: Report from Study
  Country: US (occurrence: US)
  Receive Date: 20180911
  Receipt Date: 20180917
  Transmission Date: 20181010
  Serious: Yes (Death, Hospitalization, Other)
  Sender: FDA-Public Use
  Company Number: US-EXELIXIS-CABO-18015820

PATIENT
  Age: 54 Year
  Sex: Male

DRUGS (7)
  1. LOSARTAN. [Concomitant]
     Active Substance: LOSARTAN
  2. ANTIBIOTICS [Concomitant]
     Active Substance: UNSPECIFIED INGREDIENT
  3. CABOMETYX [Suspect]
     Active Substance: CABOZANTINIB S-MALATE
     Indication: RENAL CELL CARCINOMA
     Dosage: 60 MG, QD (ON AN EMPTY STOMACH)
     Route: 048
     Dates: start: 20180524
  4. CALCIPOTRIENE. [Concomitant]
     Active Substance: CALCIPOTRIENE
  5. ACETAMINOPHEN W/HYDROCODONE [Concomitant]
     Active Substance: ACETAMINOPHEN\HYDROCODONE
  6. CARVEDILOL. [Concomitant]
     Active Substance: CARVEDILOL
  7. DOK [Concomitant]
     Active Substance: DOCUSATE SODIUM

REACTIONS (5)
  - Acute kidney injury [Recovering/Resolving]
  - Streptococcus test positive [Recovered/Resolved]
  - Oropharyngeal pain [Unknown]
  - Cardiac arrest [Fatal]
  - Malnutrition [Unknown]

NARRATIVE: CASE EVENT DATE: 2018
